FAERS Safety Report 10065488 (Version 2)
Quarter: 2014Q2

REPORT INFORMATION
  Report Type: Report from Study
  Country: JP (occurrence: JP)
  Receive Date: 20140408
  Receipt Date: 20140501
  Transmission Date: 20141212
  Serious: Yes (Hospitalization, Other)
  Sender: FDA-Public Use
  Company Number: PHHY2014JP041039

PATIENT
  Age: 73 Year
  Sex: Male
  Weight: 58 kg

DRUGS (14)
  1. INDACATEROL [Suspect]
     Indication: CHRONIC OBSTRUCTIVE PULMONARY DISEASE
     Dosage: 150 UG, DAILY
     Route: 055
     Dates: start: 20130214
  2. SYMBICORT [Concomitant]
     Indication: CHRONIC OBSTRUCTIVE PULMONARY DISEASE
     Dosage: 320 UG, UNK
     Route: 055
  3. SPIRIVA [Concomitant]
     Indication: CHRONIC OBSTRUCTIVE PULMONARY DISEASE
     Dosage: 5 UG, UNK
     Route: 055
  4. MEPTIN AIR [Concomitant]
     Indication: CHRONIC OBSTRUCTIVE PULMONARY DISEASE
     Dosage: 10 UG, UNK
     Route: 055
     Dates: end: 20130404
  5. EPADEL-S [Concomitant]
     Indication: CAROTID ARTERY STENOSIS
     Dosage: 1800 MG, UNK
     Route: 048
     Dates: end: 20130724
  6. GASCON [Concomitant]
     Dosage: 120 MG, UNK
     Route: 048
  7. CELESTAMIN [Concomitant]
     Indication: RASH
     Dosage: 0.5 MG, UNK
     Route: 048
  8. CELESTAMIN [Concomitant]
     Dosage: 0.25 MG, UNK
     Route: 048
     Dates: end: 20131021
  9. NESINA [Concomitant]
     Indication: DIABETES MELLITUS
     Dosage: 25 MG, UNK
     Route: 048
     Dates: end: 20131021
  10. PLAVIX [Concomitant]
     Indication: CAROTID ARTERY STENOSIS
     Dosage: 75 MG, UNK
     Route: 048
  11. PREDONINE [Concomitant]
     Dosage: 5 MG, UNK
     Route: 048
     Dates: start: 20131106, end: 20131223
  12. PREDONINE [Concomitant]
     Dosage: 4 MG, DAILY
     Dates: start: 20131224
  13. MICARDIS [Concomitant]
     Indication: HYPERTENSION
     Dosage: 40 MG, UNK
     Route: 048
     Dates: end: 20131021
  14. LIVALO [Concomitant]
     Indication: HYPERLIPIDAEMIA
     Dosage: 1 MG, UNK
     Route: 048

REACTIONS (8)
  - Gastric ulcer haemorrhage [Recovered/Resolved]
  - Fall [Recovered/Resolved]
  - Rib fracture [Recovered/Resolved]
  - Pain [Unknown]
  - Pneumonia [Recovered/Resolved]
  - Dyspnoea [Recovered/Resolved]
  - Steroid withdrawal syndrome [Recovered/Resolved]
  - Heart rate increased [Unknown]
